FAERS Safety Report 6171423-8 (Version None)
Quarter: 2009Q2

REPORT INFORMATION
  Report Type: 
  Country: None (occurrence: None)
  Receive Date: 20090427
  Receipt Date: 20090413
  Transmission Date: 20091009
  Serious: Yes (Hospitalization)
  Sender: FDA-Public Use
  Company Number: 2009-195413-NL

PATIENT
  Age: 76 Year
  Sex: Male

DRUGS (6)
  1. MIRTAZAPINE [Suspect]
     Indication: INSOMNIA
     Dosage: 30 MG QD ORAL  INSOMNIA
     Route: 048
     Dates: start: 20080207
  2. DIPROGENTA [Suspect]
     Indication: DERMATITIS
     Dosage: TOPICAL
     Route: 061
     Dates: start: 20080211, end: 20080313
  3. MAGNESIUM SULFATE [Concomitant]
  4. ACETYLSALICYLIC ACID [Concomitant]
  5. VALPROATE SODIUM [Concomitant]
  6. FERROGLYCINE SULFATE COMPLEX [Concomitant]

REACTIONS (1)
  - ADRENOCORTICAL INSUFFICIENCY ACUTE [None]
